FAERS Safety Report 5747415-7 (Version None)
Quarter: 2008Q2

REPORT INFORMATION
  Report Type: 
  Country: None (occurrence: None)
  Receive Date: 20080523
  Receipt Date: 20080519
  Transmission Date: 20081010
  Serious: Yes (Hospitalization, Other)
  Sender: FDA-Public Use
  Company Number: IT-WYE-G01332108

PATIENT
  Sex: Male

DRUGS (1)
  1. REFACTO [Suspect]
     Indication: FACTOR VIII DEFICIENCY
     Dosage: 1000 IU
     Route: 042
     Dates: start: 20060101, end: 20060901

REACTIONS (3)
  - ANTI FACTOR VIII ANTIBODY POSITIVE [None]
  - DRUG INEFFECTIVE [None]
  - HAEMORRHAGE [None]
